FAERS Safety Report 20009936 (Version 2)
Quarter: 2022Q1

REPORT INFORMATION
  Report Type: Spontaneous
  Country: BR (occurrence: BR)
  Receive Date: 20211028
  Receipt Date: 20220104
  Transmission Date: 20220423
  Serious: Yes (Other)
  Sender: FDA-Public Use
  Company Number: BR-PFIZER INC-202101392599

PATIENT
  Age: 59 Year
  Sex: Male

DRUGS (1)
  1. RITUXIMAB [Suspect]
     Active Substance: RITUXIMAB
     Dosage: 600 MG

REACTIONS (6)
  - Seizure [Unknown]
  - Confusional state [Unknown]
  - Hypoaesthesia [Unknown]
  - Pyrexia [Unknown]
  - Chills [Unknown]
  - Stupor [Unknown]
